FAERS Safety Report 5084307-3 (Version None)
Quarter: 2006Q3

REPORT INFORMATION
  Report Type: 
  Country: None (occurrence: None)
  Receive Date: 20060817
  Receipt Date: 20060817
  Transmission Date: 20061208
  Serious: Yes (Life-Threatening, Hospitalization)
  Sender: FDA-Public Use
  Company Number: None

PATIENT
  Age: 84 Year
  Sex: Female
  Weight: 55.7924 kg

DRUGS (3)
  1. CETUXIMAB  100-MG VIAL IMCLONE [Suspect]
     Indication: SQUAMOUS CELL CARCINOMA
     Dosage: 600MG
     Dates: start: 20060710
  2. CETUXIMAB  100-MG VIAL  BMS [Suspect]
     Dosage: 375MG
     Dates: start: 20060717
  3. CETUXIMAB  100-MG VIAL  BMS [Suspect]
     Dosage: 375MG
     Dates: start: 20060724

REACTIONS (4)
  - BILIRUBIN CONJUGATED INCREASED [None]
  - BLOOD BILIRUBIN INCREASED [None]
  - LIP HAEMORRHAGE [None]
  - THROMBOTIC THROMBOCYTOPENIC PURPURA [None]
